FAERS Safety Report 5522315-6 (Version None)
Quarter: 2007Q4

REPORT INFORMATION
  Report Type: 
  Country: None (occurrence: None)
  Receive Date: 20071120
  Receipt Date: 20071116
  Transmission Date: 20080405
  Serious: Yes (Life-Threatening)
  Sender: FDA-Public Use
  Company Number: JP-ASTRAZENECA-2007AP07147

PATIENT
  Age: 11732 Day
  Sex: Male
  Weight: 68 kg

DRUGS (13)
  1. PULMICORT RESPULES [Suspect]
     Indication: ASTHMA
     Route: 055
     Dates: start: 20070101
  2. PULMICORT RESPULES [Suspect]
     Route: 055
     Dates: start: 20070801
  3. PULMICORT RESPULES [Suspect]
     Route: 055
     Dates: start: 20071029, end: 20071029
  4. FLUTIDE:DISKUS [Concomitant]
     Indication: ASTHMA
     Route: 055
     Dates: start: 20040517
  5. THEOLONG [Concomitant]
     Indication: ASTHMA
     Route: 048
     Dates: start: 20040517
  6. MUCOSAL [Concomitant]
     Dosage: DOSE UNKNOWN
     Route: 048
     Dates: start: 20040517
  7. SULTANOL [Concomitant]
     Indication: ASTHMA
     Dosage: DOSE UNKNOWN
     Route: 055
     Dates: start: 20040517
  8. SINGULAIR [Concomitant]
     Route: 048
     Dates: start: 20060315
  9. NEOPHYLLIN M [Concomitant]
     Route: 042
     Dates: start: 20071029, end: 20071029
  10. PREDONINE [Concomitant]
     Route: 042
     Dates: start: 20071029, end: 20071029
  11. ALOTEC [Concomitant]
     Dates: start: 20070101
  12. ALOTEC [Concomitant]
     Dates: start: 20070801
  13. ALOTEC [Concomitant]
     Route: 055
     Dates: start: 20071029, end: 20071029

REACTIONS (1)
  - RESPIRATORY FAILURE [None]
